FAERS Safety Report 4322682-5 (Version None)
Quarter: 2004Q1

REPORT INFORMATION
  Report Type: 
  Country: None (occurrence: None)
  Receive Date: 20040319
  Receipt Date: 20040310
  Transmission Date: 20041129
  Serious: Yes (Hospitalization, Other)
  Sender: FDA-Public Use
  Company Number: DE-JNJFOC-20040205279

PATIENT
  Age: 53 Year
  Sex: Female
  Weight: 77 kg

DRUGS (3)
  1. DOXORUBICIN HCL [Suspect]
     Indication: CERVIX CARCINOMA
     Dosage: 74 MG, 1 IN 28 DAY, INTRAVENOUS
     Route: 042
     Dates: start: 20031013, end: 20040116
  2. DOXORUBICIN HCL [Suspect]
     Indication: METASTASIS
     Dosage: 74 MG, 1 IN 28 DAY, INTRAVENOUS
     Route: 042
     Dates: start: 20031013, end: 20040116
  3. CARBOPLATIN [Suspect]
     Indication: CERVIX CARCINOMA
     Dosage: 611 MG, 1 IN 28 DAY, INTRAVENOUS
     Route: 042
     Dates: start: 20031013, end: 20040116

REACTIONS (6)
  - ANAEMIA [None]
  - ATRIOVENTRICULAR BLOCK FIRST DEGREE [None]
  - HERPES ZOSTER [None]
  - HYPOKALAEMIA [None]
  - LEUKOPENIA [None]
  - THROMBOCYTOPENIA [None]
